FAERS Safety Report 22828328 (Version 3)
Quarter: 2025Q4

REPORT INFORMATION
  Report Type: Spontaneous
  Country: CA (occurrence: CA)
  Receive Date: 20230816
  Receipt Date: 20251201
  Transmission Date: 20260118
  Serious: Yes (Other)
  Sender: TAKEDA
  Company Number: CA-TAKEDA-2023TUS078853

PATIENT
  Age: 35 Year
  Sex: Male

DRUGS (12)
  1. VYVANSE [Suspect]
     Active Substance: LISDEXAMFETAMINE DIMESYLATE
     Indication: HIV infection
     Dosage: 30 MILLIGRAM, QD
     Dates: start: 2019
  2. VYVANSE [Suspect]
     Active Substance: LISDEXAMFETAMINE DIMESYLATE
     Indication: HIV infection
     Dosage: 30 MILLIGRAM, QD
     Dates: start: 2019
  3. ABACAVIR SULFATE\DOLUTEGRAVIR SODIUM\LAMIVUDINE [Suspect]
     Active Substance: ABACAVIR SULFATE\DOLUTEGRAVIR SODIUM\LAMIVUDINE
     Indication: HIV infection
     Dosage: UNK UNK, QD
     Dates: start: 2019
  4. BICTEGRAVIR\EMTRICITABINE\TENOFOVIR ALAFENAMIDE [Suspect]
     Active Substance: BICTEGRAVIR\EMTRICITABINE\TENOFOVIR ALAFENAMIDE
     Indication: HIV infection
     Dosage: UNK
  5. BICTEGRAVIR\EMTRICITABINE\TENOFOVIR ALAFENAMIDE [Suspect]
     Active Substance: BICTEGRAVIR\EMTRICITABINE\TENOFOVIR ALAFENAMIDE
     Indication: HIV infection
     Dosage: UNK
  6. CABOTEGRAVIR [Suspect]
     Active Substance: CABOTEGRAVIR
     Indication: HIV infection
     Dosage: UNK
  7. FERROUS SULFATE [Suspect]
     Active Substance: FERROUS SULFATE
     Indication: HIV infection
     Dosage: UNK
  8. OLANZAPINE [Suspect]
     Active Substance: OLANZAPINE
     Indication: HIV infection
     Dosage: 10 MILLIGRAM, QD
     Dates: start: 2019
  9. RILPIVIRINE [Suspect]
     Active Substance: RILPIVIRINE
     Indication: HIV infection
     Dosage: UNK
  10. SULFAMETHOXAZOLE\TRIMETHOPRIM [Suspect]
     Active Substance: SULFAMETHOXAZOLE\TRIMETHOPRIM
     Indication: HIV infection
     Dosage: UNK UNK, QD
     Dates: start: 2019
  11. FERROUS SULFATE ANHYDROUS [Suspect]
     Active Substance: FERROUS SULFATE ANHYDROUS
     Indication: HIV infection
     Dosage: UNK
  12. ABACAVIR SULFATE\LAMIVUDINE [Suspect]
     Active Substance: ABACAVIR SULFATE\LAMIVUDINE
     Indication: HIV infection
     Dosage: 1 DOSAGE FORM, QD

REACTIONS (9)
  - Disseminated mycobacterium avium complex infection [Unknown]
  - Pathogen resistance [Unknown]
  - Blood HIV RNA increased [Unknown]
  - Viral mutation identified [Unknown]
  - Pyrexia [Unknown]
  - Diarrhoea [Unknown]
  - Weight decreased [Unknown]
  - Abdominal lymphadenopathy [Unknown]
  - Cryptosporidiosis infection [Unknown]

NARRATIVE: CASE EVENT DATE: 20190101
